FAERS Safety Report 9056144 (Version 2)
Quarter: 2013Q1

REPORT INFORMATION
  Report Type: Spontaneous
  Country: US (occurrence: US)
  Receive Date: 20130205
  Receipt Date: 20130214
  Transmission Date: 20140127
  Serious: Yes (Death, Hospitalization)
  Sender: FDA-Public Use
  Company Number: PHEH2013US002837

PATIENT
  Sex: Male

DRUGS (2)
  1. EXJADE [Suspect]
     Indication: IRON METABOLISM DISORDER
     Dosage: 500 MG, 4 QD
     Route: 048
  2. EXJADE [Suspect]
     Dosage: 500 MG, 5 TABLETS QD
     Route: 048

REACTIONS (4)
  - Death [Fatal]
  - Cardiac failure congestive [Unknown]
  - Leukaemia [Unknown]
  - Pneumonia [Unknown]
